FAERS Safety Report 20306217 (Version 1)
Quarter: 2022Q1

REPORT INFORMATION
  Report Type: Report from Study
  Country: TW (occurrence: TW)
  Receive Date: 20220106
  Receipt Date: 20220106
  Transmission Date: 20220424
  Serious: Yes (Death, Other)
  Sender: FDA-Public Use
  Company Number: TW-TAKEDA-2022TUS000524

PATIENT
  Age: 80 Year
  Sex: Male

DRUGS (2)
  1. VEDOLIZUMAB [Suspect]
     Active Substance: VEDOLIZUMAB
     Indication: Crohn^s disease
     Dosage: 300 MILLIGRAM
     Route: 065
     Dates: start: 20190318, end: 20200314
  2. VEDOLIZUMAB [Suspect]
     Active Substance: VEDOLIZUMAB
     Dosage: 300 MILLIGRAM
     Route: 065
     Dates: start: 20210305, end: 20211110

REACTIONS (4)
  - Death [Fatal]
  - Pneumonia [Unknown]
  - Lung abscess [Unknown]
  - Pleural effusion [Unknown]

NARRATIVE: CASE EVENT DATE: 20211230
